FAERS Safety Report 12346974 (Version 2)
Quarter: 2016Q2

REPORT INFORMATION
  Report Type: Report from Study
  Country: JP (occurrence: JP)
  Receive Date: 20160509
  Receipt Date: 20160616
  Transmission Date: 20160815
  Serious: Yes (Hospitalization, Other)
  Sender: FDA-Public Use
  Company Number: JP-VIFOR (INTERNATIONAL) INC.-VIT-2016-02095

PATIENT
  Age: 58 Year
  Sex: Male
  Weight: 64 kg

DRUGS (39)
  1. MIRCERA [Suspect]
     Active Substance: METHOXY POLYETHYLENE GLYCOL-EPOETIN BETA
     Indication: NEPHROGENIC ANAEMIA
     Route: 042
     Dates: start: 20160126, end: 20160225
  2. MIRCERA [Suspect]
     Active Substance: METHOXY POLYETHYLENE GLYCOL-EPOETIN BETA
     Route: 042
     Dates: start: 20140203
  3. MARZULENE [Concomitant]
     Active Substance: SODIUM GUALENATE
     Route: 048
  4. ARTIST [Concomitant]
     Active Substance: CARVEDILOL
     Route: 048
  5. MONILAC [Concomitant]
     Active Substance: LACTULOSE
     Route: 048
  6. LENDORMIN D [Concomitant]
     Active Substance: BROTIZOLAM
     Route: 048
  7. CRAVIT [Concomitant]
     Active Substance: LEVOFLOXACIN
     Route: 065
  8. POLARAMINE [Concomitant]
     Active Substance: DEXCHLORPHENIRAMINE MALEATE
     Route: 048
  9. NEXIUM [Concomitant]
     Active Substance: ESOMEPRAZOLE MAGNESIUM
     Route: 048
  10. LIPACREON [Concomitant]
     Active Substance: PANCRELIPASE
     Route: 048
  11. ARTIST [Concomitant]
     Active Substance: CARVEDILOL
     Route: 048
  12. RENIVACE [Concomitant]
     Active Substance: ENALAPRIL
     Route: 048
  13. ALLOID G [Concomitant]
     Active Substance: SODIUM ALGINATE
     Route: 065
  14. ALLOID G [Concomitant]
     Active Substance: SODIUM ALGINATE
     Route: 065
  15. ARCRANE [Concomitant]
     Route: 048
  16. METHYCOBAL [Concomitant]
     Active Substance: METHYLCOBALAMIN
     Route: 065
  17. FESIN [Concomitant]
     Active Substance: IRON SUCROSE
     Route: 065
  18. MIRCERA [Suspect]
     Active Substance: METHOXY POLYETHYLENE GLYCOL-EPOETIN BETA
     Route: 042
     Dates: start: 20150609, end: 20151020
  19. DORNER [Concomitant]
     Active Substance: BERAPROST SODIUM
     Route: 048
  20. FOSRENOL [Concomitant]
     Active Substance: LANTHANUM CARBONATE
     Route: 048
  21. REGPARA [Concomitant]
     Active Substance: CINACALCET HYDROCHLORIDE
     Route: 048
  22. WARFARIN [Concomitant]
     Active Substance: WARFARIN
     Dosage: ON HAEMODIALYSIS DAY
  23. CEFCAPENE PIVOXIL HYDROCHLORIDE [Concomitant]
     Active Substance: CEFCAPENE PIVOXIL HYDROCHLORIDE
     Route: 065
  24. AMITIZA [Concomitant]
     Active Substance: LUBIPROSTONE
     Route: 048
  25. CELECOXIB. [Concomitant]
     Active Substance: CELECOXIB
     Route: 048
  26. FOSRENOL [Concomitant]
     Active Substance: LANTHANUM CARBONATE
     Route: 048
  27. AMLODIPINE [Concomitant]
     Active Substance: AMLODIPINE BESYLATE
     Route: 048
  28. TAKEPRON [Concomitant]
     Active Substance: LANSOPRAZOLE
     Route: 048
  29. MUCOSTA [Concomitant]
     Active Substance: REBAMIPIDE
     Route: 065
  30. LYRICA [Concomitant]
     Active Substance: PREGABALIN
     Route: 065
  31. MIRCERA [Suspect]
     Active Substance: METHOXY POLYETHYLENE GLYCOL-EPOETIN BETA
     Route: 042
     Dates: start: 20140513
  32. NO DRUG NAME [Concomitant]
     Route: 042
  33. FOIPAN [Concomitant]
     Active Substance: CAMOSTAT MESYLATE
     Route: 048
  34. BISLOVON [Concomitant]
     Route: 048
  35. LOXONIN [Concomitant]
     Active Substance: LOXOPROFEN SODIUM
     Route: 065
  36. CALONAL [Concomitant]
     Active Substance: ACETAMINOPHEN
     Route: 048
  37. POLARAMINE [Concomitant]
     Active Substance: DEXCHLORPHENIRAMINE MALEATE
     Route: 048
  38. WARFARIN [Concomitant]
     Active Substance: WARFARIN
     Dosage: ON NON-HAEMODIALYSIS DAY
  39. FRANDOL [Concomitant]
     Active Substance: ISOSORBIDE DINITRATE
     Route: 062

REACTIONS (18)
  - Faeces discoloured [Unknown]
  - Melaena [Unknown]
  - Haematemesis [Unknown]
  - Device related infection [Recovering/Resolving]
  - Dyspepsia [Unknown]
  - Gastrointestinal haemorrhage [Recovering/Resolving]
  - Condition aggravated [Recovering/Resolving]
  - Femoral neck fracture [Recovering/Resolving]
  - Gastric ulcer haemorrhage [Recovering/Resolving]
  - Shock [Unknown]
  - Muscle abscess [Unknown]
  - Gastrooesophageal reflux disease [Recovering/Resolving]
  - Pyrexia [Unknown]
  - Abdominal pain upper [Unknown]
  - Anaemia [Unknown]
  - Gastric ulcer [Unknown]
  - Intervertebral discitis [Unknown]
  - Fall [Unknown]

NARRATIVE: CASE EVENT DATE: 20140422
